FAERS Safety Report 9437654 (Version 1)
Quarter: 2013Q3

REPORT INFORMATION
  Report Type: Spontaneous
  Country: US (occurrence: US)
  Receive Date: 20130802
  Receipt Date: 20130802
  Transmission Date: 20140515
  Serious: Yes (Other)
  Sender: FDA-Public Use
  Company Number: US-ROCHE-1253511

PATIENT
  Sex: Female

DRUGS (5)
  1. HERCEPTIN [Suspect]
     Indication: BREAST CANCER
     Route: 042
     Dates: start: 200311
  2. HERCEPTIN [Suspect]
     Indication: NEOPLASM MALIGNANT
  3. ZOMETA [Suspect]
     Indication: PRODUCT USED FOR UNKNOWN INDICATION
     Route: 065
     Dates: start: 200311
  4. FEMARA [Concomitant]
     Indication: BREAST CANCER
     Route: 065
     Dates: start: 2003
  5. FEMARA [Concomitant]
     Indication: NEOPLASM MALIGNANT

REACTIONS (6)
  - Gingival recession [Unknown]
  - Tooth loss [Unknown]
  - Diarrhoea [Unknown]
  - Asthenia [Unknown]
  - Cardiac disorder [Unknown]
  - Mitral valve disease [Unknown]
